FAERS Safety Report 11393551 (Version 1)
Quarter: 2015Q3

REPORT INFORMATION
  Report Type: Report from Study
  Country: VE (occurrence: VE)
  Receive Date: 20150818
  Receipt Date: 20150818
  Transmission Date: 20151125
  Serious: Yes (Hospitalization, Disabling, Other)
  Sender: FDA-Public Use
  Company Number: VE-ABBVIE-15K-178-1445255-00

PATIENT
  Sex: Female
  Weight: 52 kg

DRUGS (2)
  1. CALCORT [Concomitant]
     Active Substance: DEFLAZACORT
     Indication: PRODUCT USED FOR UNKNOWN INDICATION
  2. HUMIRA [Suspect]
     Active Substance: ADALIMUMAB
     Indication: RHEUMATOID ARTHRITIS
     Route: 058
     Dates: start: 20140115, end: 20150317

REACTIONS (1)
  - Gastric neoplasm [Recovered/Resolved with Sequelae]

NARRATIVE: CASE EVENT DATE: 2015
